FAERS Safety Report 6928422-5 (Version None)
Quarter: 2010Q3

REPORT INFORMATION
  Report Type: 
  Country: None (occurrence: None)
  Receive Date: 20100817
  Receipt Date: 20100811
  Transmission Date: 20110219
  Serious: Yes (Death, Other)
  Sender: FDA-Public Use
  Company Number: US-PFIZER INC-2010101668

PATIENT
  Sex: Male

DRUGS (32)
  1. ARGATROBAN [Suspect]
     Dosage: 2 UG/KG/MIN
     Route: 042
     Dates: start: 20080515, end: 20080501
  2. ARGATROBAN [Suspect]
     Dosage: 0.25 UG/KG/MIN
     Route: 042
     Dates: start: 20080518, end: 20080501
  3. HEPARIN SODIUM [Suspect]
     Indication: AORTIC ANEURYSM REPAIR
     Dosage: 10000 IU, SINGLE
     Route: 042
     Dates: start: 20080515, end: 20080515
  4. HEPARIN SODIUM [Suspect]
     Indication: AORTIC BYPASS
     Dosage: 2000 IU, SINGLE
     Route: 042
     Dates: start: 20080515, end: 20080515
  5. HEPARIN SODIUM [Suspect]
     Indication: ENDARTERECTOMY
     Dosage: 8000 IU, SINGLE
     Route: 042
     Dates: start: 20080515, end: 20080515
  6. HEPARIN SODIUM [Suspect]
     Indication: THROMBOEMBOLECTOMY
     Dosage: 2000 IU, SINGLE
     Route: 042
     Dates: start: 20080515, end: 20080515
  7. HEPARIN SODIUM [Suspect]
     Indication: PERIPHERAL ARTERY ANGIOPLASTY
  8. HEPARIN SODIUM [Suspect]
     Indication: FASCIOTOMY
  9. ASPIRIN [Concomitant]
  10. FUROSEMIDE [Concomitant]
  11. VASELINE [Concomitant]
  12. LACRI-LUBE [Concomitant]
  13. HETASTARCH [Concomitant]
  14. MIDAZOLAM [Concomitant]
  15. FAMOTIDINE [Concomitant]
  16. CEFAZOLIN [Concomitant]
  17. ALUMINIUM HYDROXIDE [Concomitant]
  18. NITROGLYCERIN [Concomitant]
  19. ACETAMINOPHEN [Concomitant]
  20. SODIUM CHLORIDE [Concomitant]
  21. LIDOCAINE [Concomitant]
  22. MAGNESIUM SULFATE [Concomitant]
  23. FENTANYL [Concomitant]
  24. SODIUM BICARBONATE [Concomitant]
  25. CALCIUM CHLORIDE ^BIOTIKA^ [Concomitant]
  26. ASPIRIN [Concomitant]
  27. MORPHINE [Concomitant]
  28. POTASSIUM CHLORIDE [Concomitant]
  29. LABETALOL [Concomitant]
  30. NEURONTIN [Concomitant]
  31. ATORVASTATIN [Concomitant]
  32. BUPROPION [Concomitant]

REACTIONS (16)
  - ATRIAL FIBRILLATION [None]
  - CIRCULATORY COLLAPSE [None]
  - COAGULOPATHY [None]
  - HEPATIC FAILURE [None]
  - HYPERKALAEMIA [None]
  - HYPOTENSION [None]
  - LACTIC ACIDOSIS [None]
  - MOUTH HAEMORRHAGE [None]
  - MULTI-ORGAN FAILURE [None]
  - PERIPHERAL VASCULAR DISORDER [None]
  - RENAL FAILURE ACUTE [None]
  - RHABDOMYOLYSIS [None]
  - THROMBOCYTOPENIA [None]
  - THROMBOSIS IN DEVICE [None]
  - UNRESPONSIVE TO STIMULI [None]
  - VASCULAR GRAFT THROMBOSIS [None]
